FAERS Safety Report 8510114-2 (Version None)
Quarter: 2012Q3

REPORT INFORMATION
  Report Type: 
  Country: None (occurrence: None)
  Receive Date: 20120713
  Receipt Date: 20120702
  Transmission Date: 20120928
  Serious: Yes (Life-Threatening, Hospitalization)
  Sender: FDA-Public Use
  Company Number: FR-ROCHE-1083686

PATIENT
  Age: 54 Year
  Sex: Female

DRUGS (9)
  1. IFOSFAMIDE [Suspect]
     Indication: NON-HODGKIN'S LYMPHOMA
     Dosage: 2480 MG
     Dates: start: 20100101, end: 20110101
  2. METHOTREXATE [Suspect]
     Dosage: (4500 MG)
     Dates: start: 20120514
  3. MABTHERA [Suspect]
     Indication: NON-HODGKIN'S LYMPHOMA
     Dosage: 650 MG
     Dates: start: 20100510, end: 20100816
  4. METHOTREXATE [Suspect]
     Indication: NON-HODGKIN'S LYMPHOMA
     Dates: start: 20100913, end: 20100928
  5. VINCRISTINE [Suspect]
     Indication: NON-HODGKIN'S LYMPHOMA
     Dates: start: 20100510, end: 20100816
  6. DOXORUBICIN HCL [Suspect]
     Indication: NON-HODGKIN'S LYMPHOMA
     Dosage: CUMULATIVE TOTAL DOSE OF DOXORUBICINE OF 504 MG (300 MG/M2)
     Dates: start: 20100510, end: 20100816
  7. METHYLPREDNISOLONE [Suspect]
     Indication: NON-HODGKIN'S LYMPHOMA
     Dates: start: 20100510, end: 20100816
  8. ETOPOSIDE [Suspect]
     Indication: NON-HODGKIN'S LYMPHOMA
     Dosage: (500 MG)
     Dates: start: 20100101, end: 20110101
  9. PREDNISONE [Suspect]
     Indication: NON-HODGKIN'S LYMPHOMA
     Dates: start: 20100510, end: 20100816

REACTIONS (2)
  - LEUKAEMIA PLASMACYTIC [None]
  - LEUKAEMIA [None]
